FAERS Safety Report 5050011-0 (Version None)
Quarter: 2006Q3

REPORT INFORMATION
  Report Type: 
  Country: None (occurrence: None)
  Receive Date: 20060713
  Receipt Date: 20060614
  Transmission Date: 20061208
  Serious: Yes (Other)
  Sender: FDA-Public Use
  Company Number: 2006UW12698

PATIENT
  Age: 47 Year
  Sex: Female
  Weight: 74.1 kg

DRUGS (7)
  1. ARIMIDEX [Suspect]
     Indication: BREAST CANCER
     Route: 048
     Dates: start: 20050816
  2. ZOLADEX [Suspect]
     Indication: BREAST CANCER
     Route: 058
  3. VICODIN [Concomitant]
  4. CALTRATE W/ VITAMIN D [Concomitant]
  5. SALSALATE [Concomitant]
  6. TRAMADOL HCL [Concomitant]
  7. AMBIEN [Concomitant]

REACTIONS (2)
  - TENOSYNOVITIS [None]
  - TRIGGER FINGER [None]
